FAERS Safety Report 7071767-1 (Version None)
Quarter: 2010Q4

REPORT INFORMATION
  Report Type: 
  Country: None (occurrence: None)
  Receive Date: 20101029
  Receipt Date: 20091019
  Transmission Date: 20110411
  Serious: No
  Sender: FDA-Public Use
  Company Number: A0812398A

PATIENT
  Age: 69 Year
  Sex: Female

DRUGS (16)
  1. ADVAIR DISKUS 100/50 [Suspect]
     Indication: CHRONIC OBSTRUCTIVE PULMONARY DISEASE
     Dosage: 1PUFF TWICE PER DAY
     Route: 055
     Dates: start: 20090910
  2. CYMBALTA [Concomitant]
  3. SYNTHROID [Concomitant]
  4. OXYCODONE [Concomitant]
  5. LISINOPRIL [Concomitant]
  6. CARVEDILOL [Concomitant]
  7. ISOSORBID MONONITRATE [Concomitant]
  8. ZOLPIDEM [Concomitant]
  9. VEGETABLE LAXATIVE [Concomitant]
  10. FLAX SEED OIL [Concomitant]
  11. FISH OIL [Concomitant]
  12. BENADRYL [Concomitant]
  13. VITAMIN AND MINERAL PRENATAL SUPPLEMENT W/ FOLIC ACID CAP [Concomitant]
  14. STOOL SOFTENER [Concomitant]
  15. FLU SHOT [Concomitant]
  16. ALBUTEROL SULFATE AND IPRATROPIUM BROMIDE [Concomitant]

REACTIONS (1)
  - CANDIDIASIS [None]
